FAERS Safety Report 5367386-5 (Version None)
Quarter: 2007Q2

REPORT INFORMATION
  Report Type: 
  Country: None (occurrence: None)
  Receive Date: 20070622
  Receipt Date: 20060706
  Transmission Date: 20071010
  Serious: No
  Sender: FDA-Public Use
  Company Number: US-ASTRAZENECA-2006UW14017

PATIENT
  Age: 79 Year
  Sex: Female
  Weight: 48.1 kg

DRUGS (2)
  1. PULMICORT RESPULES [Suspect]
     Indication: COUGH
     Route: 055
     Dates: start: 20060601
  2. DUONEB [Concomitant]

REACTIONS (4)
  - EAR PAIN [None]
  - HEADACHE [None]
  - PYREXIA [None]
  - RHINORRHOEA [None]
